FAERS Safety Report 15333867 (Version 8)
Quarter: 2019Q4

REPORT INFORMATION
  Report Type: Report from Study
  Country: US (occurrence: US)
  Receive Date: 20180830
  Receipt Date: 20191112
  Transmission Date: 20200122
  Serious: Yes (Hospitalization, Other)
  Sender: FDA-Public Use
  Company Number: US-TESARO, INC-US-2018TSO03856

PATIENT
  Age: 60 Year
  Sex: Female
  Weight: 69 kg

DRUGS (6)
  1. GABAPENTIN. [Concomitant]
     Active Substance: GABAPENTIN
     Indication: PRODUCT USED FOR UNKNOWN INDICATION
  2. NIRAPARIB CAPSULE [Suspect]
     Active Substance: NIRAPARIB
     Dosage: 100 MG, QPM WITH FOOD
     Route: 048
     Dates: start: 201905
  3. COMPAZINE [Concomitant]
     Active Substance: PROCHLORPERAZINE MALEATE
     Indication: PRODUCT USED FOR UNKNOWN INDICATION
  4. NIRAPARIB CAPSULE [Suspect]
     Active Substance: NIRAPARIB
     Dosage: 100 MG, QD
     Route: 048
  5. IMBRUVICA [Concomitant]
     Active Substance: IBRUTINIB
     Indication: PRODUCT USED FOR UNKNOWN INDICATION
  6. NIRAPARIB CAPSULE [Suspect]
     Active Substance: NIRAPARIB
     Indication: MALIGNANT PERITONEAL NEOPLASM
     Dosage: 200 MG, QPM WITHOUT/WITH FOOD, 2 CAPSULES BY MOUTH NIGHTLY
     Route: 048
     Dates: start: 20180719

REACTIONS (16)
  - Gait disturbance [Unknown]
  - Unevaluable event [Unknown]
  - Fatigue [Not Recovered/Not Resolved]
  - Pericarditis [Unknown]
  - Bone marrow disorder [Not Recovered/Not Resolved]
  - Bronchitis [Unknown]
  - Hiccups [Not Recovered/Not Resolved]
  - Rhinorrhoea [Unknown]
  - Lymphocyte count increased [Unknown]
  - Hospitalisation [Unknown]
  - Chronic lymphocytic leukaemia [Not Recovered/Not Resolved]
  - White blood cell count increased [Not Recovered/Not Resolved]
  - Monocyte count increased [Unknown]
  - Anaemia [Recovered/Resolved]
  - Insomnia [Recovering/Resolving]
  - Nausea [Not Recovered/Not Resolved]

NARRATIVE: CASE EVENT DATE: 20180110
